FAERS Safety Report 8403255-1 (Version None)
Quarter: 2012Q2

REPORT INFORMATION
  Report Type: 
  Country: None (occurrence: None)
  Receive Date: 20120601
  Receipt Date: 20120523
  Transmission Date: 20120825
  Serious: Yes (Other)
  Sender: FDA-Public Use
  Company Number: US-JNJFOC-20120519090

PATIENT
  Age: 31 Year
  Sex: Female
  Weight: 78.93 kg

DRUGS (1)
  1. REMICADE [Suspect]
     Indication: RHEUMATOID ARTHRITIS
     Dosage: DURATION REPORTED ^FOR SOME TIME^
     Route: 042
     Dates: end: 20120522

REACTIONS (4)
  - INFUSION RELATED REACTION [None]
  - RASH [None]
  - VISION BLURRED [None]
  - BLISTER [None]
